FAERS Safety Report 17684898 (Version 1)
Quarter: 2020Q2

REPORT INFORMATION
  Report Type: Report from Study
  Country: ZA (occurrence: ZA)
  Receive Date: 20200420
  Receipt Date: 20200420
  Transmission Date: 20200714
  Serious: Yes (Death)
  Sender: FDA-Public Use
  Company Number: ZA-ASTRAZENECA-2020SE52359

PATIENT

DRUGS (6)
  1. ASPEN AZITHROMYCIN [Concomitant]
  2. SPIRACTIN [Concomitant]
  3. INTEFLORA [Concomitant]
  4. ZUVAMOR [Suspect]
     Active Substance: ROSUVASTATIN
     Route: 048
  5. ALTOSEC [Concomitant]
     Active Substance: OMEPRAZOLE
  6. PRADAXA [Concomitant]
     Active Substance: DABIGATRAN ETEXILATE MESYLATE

REACTIONS (1)
  - Death [Fatal]
